FAERS Safety Report 4715515-6 (Version None)
Quarter: 2005Q3

REPORT INFORMATION
  Report Type: 
  Country: None (occurrence: None)
  Receive Date: 20050718
  Receipt Date: 20050422
  Transmission Date: 20060218
  Serious: Yes (Death, Hospitalization)
  Sender: FDA-Public Use
  Company Number: GB-JNJFOC-20040800674

PATIENT

DRUGS (9)
  1. INFLIXIMAB [Suspect]
     Route: 042
  2. INFLIXIMAB [Suspect]
     Route: 042
  3. TINZAPARIN [Concomitant]
     Dosage: 15000 IUSQ
  4. SPIRONOLACTONE [Concomitant]
  5. DOMPERIDONE [Concomitant]
  6. OMPRAZOLE [Concomitant]
  7. OROMORPH [Concomitant]
  8. LORAZEPAM [Concomitant]
  9. METHOTREXATE [Concomitant]

REACTIONS (4)
  - ASCITES [None]
  - DISEASE PROGRESSION [None]
  - FATIGUE [None]
  - OVARIAN CANCER [None]
